FAERS Safety Report 18987828 (Version 6)
Quarter: 2025Q2

REPORT INFORMATION
  Report Type: Report from Study
  Country: US (occurrence: US)
  Receive Date: 20210309
  Receipt Date: 20250521
  Transmission Date: 20250716
  Serious: Yes (Other)
  Sender: ALEXION PHARMACEUTICALS
  Company Number: US-ALXN-A202103038

PATIENT

DRUGS (2)
  1. SOLIRIS [Suspect]
     Active Substance: ECULIZUMAB
     Indication: Paroxysmal nocturnal haemoglobinuria
  2. SOLIRIS [Suspect]
     Active Substance: ECULIZUMAB

REACTIONS (14)
  - Haemoglobin decreased [Not Recovered/Not Resolved]
  - Chromaturia [Unknown]
  - Blood lactate dehydrogenase increased [Unknown]
  - Platelet count decreased [Unknown]
  - COVID-19 [Recovered/Resolved]
  - Ageusia [Unknown]
  - Memory impairment [Unknown]
  - Dysphonia [Unknown]
  - Pyrexia [Unknown]
  - Nasopharyngitis [Unknown]
  - Cough [Unknown]
  - Fatigue [Unknown]
  - Amnesia [Unknown]
  - Muscle disorder [Unknown]
